FAERS Safety Report 16762457 (Version 1)
Quarter: 2019Q3

REPORT INFORMATION
  Report Type: Spontaneous
  Country: GB (occurrence: TW)
  Receive Date: 20190831
  Receipt Date: 20190831
  Transmission Date: 20191005
  Serious: Yes (Other)
  Sender: FDA-Public Use
  Company Number: GB-MICRO LABS LIMITED-ML2019-02074

PATIENT
  Age: 77 Year
  Sex: Female

DRUGS (2)
  1. KETOROLAC [Suspect]
     Active Substance: KETOROLAC TROMETHAMINE
  2. SULINDAC. [Suspect]
     Active Substance: SULINDAC

REACTIONS (1)
  - Stevens-Johnson syndrome [Unknown]
